FAERS Safety Report 5630623-3 (Version None)
Quarter: 2008Q1

REPORT INFORMATION
  Report Type: 
  Country: None (occurrence: None)
  Receive Date: 20080219
  Receipt Date: 20080219
  Transmission Date: 20080703
  Serious: Yes (Death, Life-Threatening, Hospitalization)
  Sender: FDA-Public Use
  Company Number: None

PATIENT
  Age: 86 Year
  Sex: Female
  Weight: 54.4316 kg

DRUGS (2)
  1. HEPARIN [Suspect]
     Indication: HIP SURGERY
     Dosage: 5,000 UNITS TWICE DAILY SQ
     Route: 058
     Dates: start: 20080107, end: 20080109
  2. LOVENOX [Suspect]
     Dosage: 40 UNITS ONCE DAILY SQ
     Route: 058
     Dates: start: 20080109, end: 20080115

REACTIONS (2)
  - HEPARIN-INDUCED THROMBOCYTOPENIA [None]
  - POST PROCEDURAL COMPLICATION [None]
